FAERS Safety Report 5688279-X (Version None)
Quarter: 2008Q1

REPORT INFORMATION
  Report Type: 
  Country: None (occurrence: None)
  Receive Date: 20080331
  Receipt Date: 20080228
  Transmission Date: 20080703
  Serious: No
  Sender: FDA-Public Use
  Company Number: US-BAYER-200817543NA

PATIENT
  Age: 48 Year
  Sex: Female
  Weight: 78 kg

DRUGS (6)
  1. LEUKINE (LYOPHILIZED) [Suspect]
     Indication: DRUG USE FOR UNKNOWN INDICATION
     Dosage: TOTAL DAILY DOSE: 500 ?G  UNIT DOSE: 250 ?G
     Route: 058
     Dates: start: 20080221, end: 20080224
  2. CELEXA [Concomitant]
     Dosage: TOTAL DAILY DOSE: 40 MG
  3. COLCHICINE [Concomitant]
  4. OXYCONTIN [Concomitant]
     Dosage: TOTAL DAILY DOSE: 80 MG
     Route: 048
  5. OXYCODONE HCL [Concomitant]
     Route: 048
  6. XANAX [Concomitant]
     Route: 048

REACTIONS (3)
  - CHILLS [None]
  - PAIN [None]
  - RASH ERYTHEMATOUS [None]
